FAERS Safety Report 4408887-3 (Version None)
Quarter: 2004Q3

REPORT INFORMATION
  Report Type: 
  Country: None (occurrence: None)
  Receive Date: 20040727
  Receipt Date: 20040713
  Transmission Date: 20050211
  Serious: Yes (Other)
  Sender: FDA-Public Use
  Company Number: DE-AMGEN-UK083287

PATIENT
  Age: 56 Year
  Sex: Male

DRUGS (10)
  1. NEUPOGEN [Suspect]
     Indication: BLOOD STEM CELL HARVEST
     Route: 058
  2. METRONIDAZOLE [Suspect]
  3. CIPROFLOXACIN [Suspect]
  4. CO-TRIMOXAZOLE [Suspect]
  5. ALLOPURINOL [Suspect]
  6. CYCLOPHOSPHAMIDE [Concomitant]
  7. DEXAMETHASONE [Concomitant]
  8. DOXORUBICIN HCL [Concomitant]
  9. ONCOVIN [Concomitant]
  10. ACYCLOVIR [Concomitant]

REACTIONS (1)
  - DERMATITIS PSORIASIFORM [None]
